FAERS Safety Report 6435315-9 (Version None)
Quarter: 2009Q4

REPORT INFORMATION
  Report Type: 
  Country: None (occurrence: None)
  Receive Date: 20091110
  Receipt Date: 20091030
  Transmission Date: 20100525
  Serious: Yes (Other)
  Sender: FDA-Public Use
  Company Number: PHHY2009FI47639

PATIENT
  Age: 80 Year
  Sex: Male

DRUGS (4)
  1. EXELON [Suspect]
     Indication: DEMENTIA ALZHEIMER'S TYPE
     Dosage: 4.6 MG/24 H PATCH
     Dates: start: 20090604
  2. EXELON [Suspect]
     Dosage: 9.5 MG/24 H PATCHES
  3. CITALOPRAM HYDROBROMIDE [Concomitant]
  4. VITAMINS [Concomitant]

REACTIONS (4)
  - DEFAECATION URGENCY [None]
  - HEADACHE [None]
  - LOSS OF CONSCIOUSNESS [None]
  - URINARY INCONTINENCE [None]
